FAERS Safety Report 19884011 (Version 1)
Quarter: 2021Q3

REPORT INFORMATION
  Report Type: Spontaneous
  Country: US (occurrence: US)
  Receive Date: 20210924
  Receipt Date: 20210924
  Transmission Date: 20211014
  Serious: No
  Sender: FDA-Public Use
  Company Number: None

PATIENT
  Age: 31 Year
  Sex: Female
  Weight: 76.05 kg

DRUGS (1)
  1. INFLECTRA [Suspect]
     Active Substance: INFLIXIMAB-DYYB
     Indication: CROHN^S DISEASE
     Dosage: ?          OTHER FREQUENCY:Q8 WEEKS;?
     Route: 041
     Dates: start: 20210413, end: 20210924

REACTIONS (6)
  - Nausea [None]
  - Infusion related reaction [None]
  - Feeling hot [None]
  - Tachycardia [None]
  - Pallor [None]
  - Dyspnoea [None]

NARRATIVE: CASE EVENT DATE: 20210924
